FAERS Safety Report 4284757-9 (Version None)
Quarter: 2004Q1

REPORT INFORMATION
  Report Type: 
  Country: None (occurrence: None)
  Receive Date: 20040130
  Receipt Date: 20040109
  Transmission Date: 20041129
  Serious: Yes (Other)
  Sender: FDA-Public Use
  Company Number: FR_031203240

PATIENT
  Age: 24 Year
  Sex: Female
  Weight: 60 kg

DRUGS (2)
  1. GEMZAR [Suspect]
     Indication: BONE SARCOMA
     Dosage: 3000 MG/OTHER
     Route: 050
     Dates: end: 20031105
  2. TAXOTERE [Concomitant]

REACTIONS (7)
  - DYSPNOEA [None]
  - HAEMOGLOBIN DECREASED [None]
  - INTERSTITIAL LUNG DISEASE [None]
  - PERICARDITIS [None]
  - PYREXIA [None]
  - TACHYCARDIA [None]
  - WHITE BLOOD CELL COUNT DECREASED [None]
